FAERS Safety Report 5620917-X (Version None)
Quarter: 2008Q1

REPORT INFORMATION
  Report Type: 
  Country: None (occurrence: None)
  Receive Date: 20080208
  Receipt Date: 20080131
  Transmission Date: 20080703
  Serious: Yes (Other)
  Sender: FDA-Public Use
  Company Number: GB-PFIZER INC-2008009035

PATIENT
  Age: 40 Year
  Sex: Female

DRUGS (3)
  1. PREGABALIN [Suspect]
     Indication: PARAESTHESIA
  2. PREGABALIN [Suspect]
     Indication: BACK PAIN
  3. CO-CODAMOL [Concomitant]

REACTIONS (13)
  - AGGRESSION [None]
  - CONSTIPATION [None]
  - CONVERSION DISORDER [None]
  - EMOTIONAL DISORDER [None]
  - INSOMNIA [None]
  - MALAISE [None]
  - MOOD SWINGS [None]
  - PAIN [None]
  - PAROSMIA [None]
  - TEARFULNESS [None]
  - TEMPERATURE REGULATION DISORDER [None]
  - VIOLENCE-RELATED SYMPTOM [None]
  - WEIGHT INCREASED [None]
